FAERS Safety Report 9218944 (Version 2)
Quarter: 2013Q2

REPORT INFORMATION
  Report Type: Spontaneous
  Country: US (occurrence: US)
  Receive Date: 20130409
  Receipt Date: 20130507
  Transmission Date: 20140414
  Serious: Yes (Hospitalization, Other)
  Sender: FDA-Public Use
  Company Number: US-BAYER-2013-043614

PATIENT
  Age: 23 Year
  Sex: Female

DRUGS (2)
  1. MIRENA [Suspect]
     Indication: BLEEDING ANOVULATORY
     Dosage: 20 MCG/24HR, CONT
     Route: 015
     Dates: start: 20130212, end: 20130328
  2. MIRENA [Suspect]
     Indication: BLEEDING ANOVULATORY
     Dosage: UNK
     Dates: start: 20130409

REACTIONS (6)
  - Device expulsion [None]
  - Genital haemorrhage [None]
  - Anaemia [None]
  - Vaginal haemorrhage [None]
  - Anaemia [None]
  - Procedural pain [Recovered/Resolved]
